FAERS Safety Report 7768406-0 (Version None)
Quarter: 2011Q3

REPORT INFORMATION
  Report Type: 
  Country: None (occurrence: None)
  Receive Date: 20110922
  Receipt Date: 20110225
  Transmission Date: 20111222
  Serious: Yes (Other)
  Sender: FDA-Public Use
  Company Number: US-ASTRAZENECA-2011SE11139

PATIENT
  Sex: Female

DRUGS (1)
  1. SEROQUEL [Suspect]
     Indication: BIPOLAR DISORDER
     Route: 048
     Dates: start: 20100801

REACTIONS (6)
  - SUICIDAL IDEATION [None]
  - PANIC REACTION [None]
  - CRYING [None]
  - DRUG DOSE OMISSION [None]
  - FEELING OF DESPAIR [None]
  - EMOTIONAL DISTRESS [None]
